FAERS Safety Report 7065111-3 (Version None)
Quarter: 2010Q4

REPORT INFORMATION
  Report Type: 
  Country: None (occurrence: None)
  Receive Date: 20101027
  Receipt Date: 19930416
  Transmission Date: 20110411
  Serious: Yes (Death, Hospitalization)
  Sender: FDA-Public Use
  Company Number: US-ROCHE-930200730001

PATIENT
  Age: 72 Year
  Sex: Male

DRUGS (1)
  1. TEGISON [Suspect]
     Indication: PSORIASIS
     Route: 048
     Dates: end: 19930414

REACTIONS (2)
  - RENAL FAILURE ACUTE [None]
  - SEPSIS [None]
